FAERS Safety Report 21146008 (Version 9)
Quarter: 2022Q4

REPORT INFORMATION
  Report Type: Spontaneous
  Country: DE (occurrence: DE)
  Receive Date: 20220729
  Receipt Date: 20221223
  Transmission Date: 20230113
  Serious: Yes (Hospitalization, Other)
  Sender: FDA-Public Use
  Company Number: DE-002147023-NVSC2022DE073177

PATIENT
  Age: 60 Year
  Sex: Male
  Weight: 82.6 kg

DRUGS (22)
  1. DICLOFENAC [Suspect]
     Active Substance: DICLOFENAC
     Indication: Rheumatoid arthritis
     Dosage: 500 MILLIGRAM, ONCE A DAY (500 MG, QD)
     Route: 065
     Dates: start: 1980, end: 202112
  2. DICLOFENAC [Suspect]
     Active Substance: DICLOFENAC
     Dosage: 75 MILLIGRAM
     Route: 048
     Dates: start: 1980, end: 20211230
  3. PREDNISOLONE [Suspect]
     Active Substance: PREDNISOLONE
     Indication: Rheumatoid arthritis
     Dosage: 5 MILLIGRAM, ONCE A DAY
     Route: 048
     Dates: start: 1980
  4. PREDNISOLONE [Suspect]
     Active Substance: PREDNISOLONE
     Dosage: 10 MILLIGRAM, EVERY WEEK
     Route: 048
     Dates: start: 20220614
  5. IANALUMAB [Suspect]
     Active Substance: IANALUMAB
     Indication: Rheumatoid arthritis
     Dosage: 300 MILLIGRAM, ONCE A DAY
     Route: 058
     Dates: start: 20220106
  6. METHOTREXATE SODIUM [Suspect]
     Active Substance: METHOTREXATE SODIUM
     Indication: Rheumatoid arthritis
     Dosage: 10 MILLIGRAM, EVERY WEEK
     Route: 058
     Dates: start: 2011
  7. AMOXICILLIN [Concomitant]
     Active Substance: AMOXICILLIN
     Indication: Infection prophylaxis
     Dosage: 3000 MILLIGRAM, ONCE A DAY (1000 MG, TID )
     Route: 048
     Dates: start: 20220528
  8. METOPROLOL SUCCINATE [Concomitant]
     Active Substance: METOPROLOL SUCCINATE
     Indication: Hypertension
     Dosage: UNK
     Route: 016
     Dates: start: 202111
  9. METOPROLOL SUCCINATE [Concomitant]
     Active Substance: METOPROLOL SUCCINATE
     Dosage: 23.8 MILLIGRAM, ONCE A DAY
     Route: 048
     Dates: start: 202111
  10. FOLIC ACID [Concomitant]
     Active Substance: FOLIC ACID
     Indication: Prophylaxis
     Dosage: UNK
     Route: 065
     Dates: start: 2011
  11. HYDROCHLOROTHIAZIDE [Concomitant]
     Active Substance: HYDROCHLOROTHIAZIDE
     Indication: Hypertension
     Dosage: UNK
     Route: 016
     Dates: start: 2014
  12. INDOMETHACIN [Concomitant]
     Active Substance: INDOMETHACIN
     Indication: Rheumatoid arthritis
     Dosage: 50 MILLIGRAM PRN
     Route: 065
     Dates: start: 20220317
  13. METAMIZOL [Concomitant]
     Active Substance: METAMIZOLE SODIUM
     Indication: Rheumatoid arthritis
     Dosage: 500 MILLIGRAM, AS NECESSARY
     Route: 048
     Dates: start: 20211231
  14. METFORMIN [Concomitant]
     Active Substance: METFORMIN HYDROCHLORIDE
     Indication: Type 2 diabetes mellitus
     Dosage: 1000 MILLIGRAM, ONCE A DAY (500 MG, BID )
     Route: 048
     Dates: start: 2011
  15. METAMIZOLE [Concomitant]
     Active Substance: METAMIZOLE
     Indication: Rheumatoid arthritis
     Dosage: UNK
     Route: 065
     Dates: start: 20211231
  16. PANTOPRAZOLE SODIUM [Concomitant]
     Active Substance: PANTOPRAZOLE SODIUM
     Indication: Large intestinal ulcer
     Dosage: 40 MILLIGRAM, ONCE A DAY
     Route: 016
     Dates: start: 20220317
  17. PANTOPRAZOLE SODIUM [Concomitant]
     Active Substance: PANTOPRAZOLE SODIUM
     Indication: Large intestinal ulcer
  18. SULTAMICILLIN [Concomitant]
     Active Substance: SULTAMICILLIN
     Indication: Infection prophylaxis
     Dosage: 9 GRAM, ONCE A DAY (3 G, TID)
     Route: 042
     Dates: start: 20220519, end: 20220527
  19. TORSEMIDE [Concomitant]
     Active Substance: TORSEMIDE
     Indication: Hypertension
     Dosage: 10 MILLIGRAM, ONCE A DAY
     Route: 048
     Dates: start: 2019, end: 20220217
  20. TORSEMIDE [Concomitant]
     Active Substance: TORSEMIDE
     Dosage: 10 MILLIGRAM, ONCE A DAY
     Route: 048
     Dates: start: 20220528
  21. ETORICOXIB [Concomitant]
     Active Substance: ETORICOXIB
     Indication: Rheumatoid arthritis
     Dosage: 90 MILLIGRAM, ONCE A DAY
     Route: 048
     Dates: start: 20220614
  22. Unacid [Concomitant]
     Indication: Infection prophylaxis
     Dosage: 9 GRAM, ONCE A DAY
     Route: 042
     Dates: start: 20220519

REACTIONS (2)
  - Intestinal haemorrhage [Recovered/Resolved]
  - Large intestinal ulcer [Recovered/Resolved]

NARRATIVE: CASE EVENT DATE: 20220317
